FAERS Safety Report 9356443 (Version 1)
Quarter: 2013Q2

REPORT INFORMATION
  Report Type: Spontaneous
  Country: US (occurrence: US)
  Receive Date: 20130619
  Receipt Date: 20130619
  Transmission Date: 20140414
  Serious: No
  Sender: FDA-Public Use
  Company Number: US-009507513-1306USA002099

PATIENT
  Age: 7 Year
  Sex: Male

DRUGS (3)
  1. CLARITIN CHEWABLE TABLETS [Suspect]
     Indication: HYPERSENSITIVITY
     Dosage: 10 MG, QD
     Route: 048
  2. CLARITIN CHEWABLE TABLETS [Suspect]
     Dosage: 5 MG, ONCE
     Route: 048
     Dates: start: 20130529
  3. CLARITIN CHEWABLE TABLETS [Suspect]
     Dosage: 10 MG, ONCE
     Route: 048
     Dates: start: 20130529

REACTIONS (1)
  - Overdose [Recovering/Resolving]
